FAERS Safety Report 7019318-1 (Version None)
Quarter: 2010Q3

REPORT INFORMATION
  Report Type: 
  Country: None (occurrence: None)
  Receive Date: 20100928
  Receipt Date: 20100923
  Transmission Date: 20110219
  Serious: Yes (Death)
  Sender: FDA-Public Use
  Company Number: US-GILEAD-2010-0032093

PATIENT
  Age: 80 Year
  Sex: Male
  Weight: 97.156 kg

DRUGS (18)
  1. LETAIRIS [Suspect]
     Indication: PULMONARY ARTERIAL HYPERTENSION
     Route: 048
     Dates: start: 20100722, end: 20100917
  2. OXYGEN [Concomitant]
  3. WARFARIN [Concomitant]
  4. FUROSEMIDE [Concomitant]
  5. SPIRONOLACTONE [Concomitant]
  6. METOPROLOL TARTRATE [Concomitant]
  7. CARVEDILOL [Concomitant]
  8. COZAAR [Concomitant]
  9. POTASSIUM 10% LIQUID [Concomitant]
  10. ZOFRAN [Concomitant]
  11. PRAZOSIN HCL [Concomitant]
  12. BACTRIM DS [Concomitant]
  13. PROTONIX [Concomitant]
  14. ACETAMINOPHEN [Concomitant]
  15. PREDNISONE [Concomitant]
  16. MECLIZINE [Concomitant]
  17. HYDROCODONE BITARTRATE AND ACETAMINOPHEN [Concomitant]
  18. ASCORBIC ACID [Concomitant]

REACTIONS (1)
  - DEATH [None]
